FAERS Safety Report 6633186-9 (Version None)
Quarter: 2010Q1

REPORT INFORMATION
  Report Type: 
  Country: None (occurrence: None)
  Receive Date: 20100312
  Receipt Date: 20100305
  Transmission Date: 20100710
  Serious: Yes (Hospitalization)
  Sender: FDA-Public Use
  Company Number: PHHO2010CN02034

PATIENT
  Sex: Male
  Weight: 97.4 kg

DRUGS (7)
  1. BLINDED ALISKIREN ALI+TAB+CF [Suspect]
     Dosage: DOUBLE BLIND
     Route: 048
     Dates: start: 20100107, end: 20100203
  2. BLINDED ENALAPRIL COMP-ENA+ [Suspect]
     Dosage: DOUBLE BLIND
     Route: 048
     Dates: start: 20100107, end: 20100203
  3. BLINDED NO TREATMENT RECEIVED NOMED [Suspect]
     Dosage: DOUBLE BLIND
     Route: 048
     Dates: start: 20100107, end: 20100203
  4. BLINDED ALISKIREN ALI+TAB+CF [Suspect]
     Dosage: DOUBLE BLIND
     Route: 048
     Dates: start: 20100208
  5. BLINDED ENALAPRIL COMP-ENA+ [Suspect]
     Dosage: DOUBLE BLIND
     Route: 048
     Dates: start: 20100208
  6. BLINDED NO TREATMENT RECEIVED NOMED [Suspect]
     Dosage: DOUBLE BLIND
     Route: 048
     Dates: start: 20100208
  7. COMPARATOR ENALAPRIL [Suspect]
     Indication: CARDIAC FAILURE
     Dosage: UNK

REACTIONS (6)
  - CARDIAC FAILURE [None]
  - CORONARY ARTERY DISEASE [None]
  - COUGH [None]
  - HYPERTENSION [None]
  - NASOPHARYNGITIS [None]
  - NOCTURNAL DYSPNOEA [None]
